FAERS Safety Report 6126251-6 (Version None)
Quarter: 2009Q1

REPORT INFORMATION
  Report Type: 
  Country: None (occurrence: None)
  Receive Date: 20090320
  Receipt Date: 20090311
  Transmission Date: 20090719
  Serious: Yes (Other)
  Sender: FDA-Public Use
  Company Number: US-ELI_LILLY_AND_COMPANY-US200903003003

PATIENT
  Sex: Female

DRUGS (4)
  1. CYMBALTA [Suspect]
     Indication: GENERALISED ANXIETY DISORDER
     Dosage: 60 MG, UNK
     Route: 048
  2. YASMIN [Concomitant]
     Indication: CONTRACEPTION
  3. ALLEGRA [Concomitant]
     Indication: HYPERSENSITIVITY
  4. ZEGERID [Concomitant]

REACTIONS (3)
  - ABDOMINAL PAIN [None]
  - ABDOMINAL PAIN UPPER [None]
  - GALLBLADDER OPERATION [None]
